FAERS Safety Report 4370490-1 (Version None)
Quarter: 2004Q2

REPORT INFORMATION
  Report Type: 
  Country: None (occurrence: None)
  Receive Date: 20040527
  Receipt Date: 20040512
  Transmission Date: 20050107
  Serious: Yes (Other)
  Sender: FDA-Public Use
  Company Number: 2004-DE-02836GD

PATIENT

DRUGS (3)
  1. CYCLOPHOSPHAMIDE [Suspect]
     Indication: WEGENER'S GRANULOMATOSIS
     Dosage: PO
     Route: 048
  2. GLUCOCORTICOSTEROIDS (GLUCOCORTICOSTEROIDS) [Suspect]
     Indication: WEGENER'S GRANULOMATOSIS
  3. ANTITHYMOCYTE GLOBULIN (ANTITHYMOCYTE IMMUNOGLOBULIN) [Suspect]
     Indication: WEGENER'S GRANULOMATOSIS
     Dosage: IV
     Route: 042

REACTIONS (4)
  - DISEASE PROGRESSION [None]
  - PNEUMONIA BACTERIAL [None]
  - THERAPY NON-RESPONDER [None]
  - WEGENER'S GRANULOMATOSIS [None]
